FAERS Safety Report 8512068-1 (Version None)
Quarter: 2012Q3

REPORT INFORMATION
  Report Type: 
  Country: None (occurrence: None)
  Receive Date: 20120716
  Receipt Date: 20120702
  Transmission Date: 20120928
  Serious: Yes (Hospitalization)
  Sender: FDA-Public Use
  Company Number: US-MYLANLABS-2012S1013442

PATIENT
  Age: 28 Month
  Sex: Male

DRUGS (2)
  1. LEVETIRACETAM [Suspect]
     Dosage: 20 MG/KG/DAY
     Route: 065
  2. OXCARBAZEPINE [Suspect]
     Route: 065

REACTIONS (4)
  - CRYING [None]
  - ENCEPHALITIS AUTOIMMUNE [None]
  - CYANOSIS [None]
  - AGGRESSION [None]
